FAERS Safety Report 9594377 (Version 1)
Quarter: 2013Q3

REPORT INFORMATION
  Report Type: Spontaneous
  Country: US (occurrence: None)
  Receive Date: 20130923
  Receipt Date: 20130923
  Transmission Date: 20140515
  Serious: Yes (Hospitalization)
  Sender: FDA-Public Use
  Company Number: 2013STPI000117

PATIENT
  Age: 40 Year
  Sex: Female

DRUGS (1)
  1. MATULANE [Suspect]
     Indication: HODGKIN^S DISEASE
     Dates: start: 20130215, end: 201303

REACTIONS (2)
  - Neutropenia [None]
  - Infection [None]
